FAERS Safety Report 21738834 (Version 1)
Quarter: 2022Q4

REPORT INFORMATION
  Report Type: Report from Study
  Country: CA (occurrence: CA)
  Receive Date: 20221216
  Receipt Date: 20221216
  Transmission Date: 20230113
  Serious: Yes (Hospitalization, Other)
  Sender: FDA-Public Use
  Company Number: CA-TAKEDA-2022TUS097038

PATIENT
  Age: 78 Year
  Sex: Male

DRUGS (7)
  1. VEDOLIZUMAB [Suspect]
     Active Substance: VEDOLIZUMAB
     Indication: Crohn^s disease
     Dosage: 300 MILLIGRAM
     Route: 042
     Dates: start: 20160426
  2. PREDNISONE [Concomitant]
     Active Substance: PREDNISONE
     Dosage: UNK
  3. DUTASTERIDE [Concomitant]
     Active Substance: DUTASTERIDE
     Dosage: 5 MILLIGRAM, QD
  4. TAMSULOSIN [Concomitant]
     Active Substance: TAMSULOSIN
     Dosage: 4 MILLIGRAM
  5. HYDROCHLOROTHIAZIDE [Concomitant]
     Active Substance: HYDROCHLOROTHIAZIDE
     Dosage: UNK
  6. ALLOPURINOL [Concomitant]
     Active Substance: ALLOPURINOL
     Dosage: UNK
  7. COLCHICINE [Concomitant]
     Active Substance: COLCHICINE
     Dosage: UNK

REACTIONS (2)
  - Cardiac failure [Recovered/Resolved]
  - Weight decreased [Recovered/Resolved]
